FAERS Safety Report 13259897 (Version 1)
Quarter: 2017Q1

REPORT INFORMATION
  Report Type: Spontaneous
  Country: US (occurrence: US)
  Receive Date: 20170222
  Receipt Date: 20170222
  Transmission Date: 20170428
  Serious: No
  Sender: FDA-Public Use
  Company Number: US-ASTRAZENECA-2017SE16019

PATIENT
  Age: 24813 Day
  Sex: Female
  Weight: 65.8 kg

DRUGS (4)
  1. DILTIAZEM. [Concomitant]
     Active Substance: DILTIAZEM
     Indication: BLOOD PRESSURE ABNORMAL
     Route: 048
     Dates: start: 2001
  2. SYMBICORT [Suspect]
     Active Substance: BUDESONIDE\FORMOTEROL FUMARATE DIHYDRATE
     Indication: ASTHMA
     Dosage: 80/4.5 MCG 2 PUFFS TWICE A DAY
     Route: 055
     Dates: start: 20170207
  3. FENOFIBRATE. [Concomitant]
     Active Substance: FENOFIBRATE
     Indication: BLOOD CHOLESTEROL ABNORMAL
     Dosage: 48 MG, DAILY. THE GENERIC FOR TRICOR
     Route: 048
     Dates: start: 2001
  4. STIMATE [Concomitant]
     Active Substance: DESMOPRESSIN ACETATE
     Indication: PROCEDURAL HAEMORRHAGE
     Dosage: EVERY 6 HOURS, CAN ONLY TAKE IT ONE MORE TIME IF NEEDED AFTER INITIAL DOSE, BUT NO MORE THAN 2 DO...
     Route: 045
     Dates: start: 1999

REACTIONS (9)
  - Peak expiratory flow rate decreased [Not Recovered/Not Resolved]
  - Off label use [Not Recovered/Not Resolved]
  - Paranasal sinus discomfort [Not Recovered/Not Resolved]
  - Intentional product misuse [Unknown]
  - Headache [Not Recovered/Not Resolved]
  - Adverse event [Not Recovered/Not Resolved]
  - Nasal congestion [Not Recovered/Not Resolved]
  - Cough [Not Recovered/Not Resolved]
  - Sneezing [Recovered/Resolved]

NARRATIVE: CASE EVENT DATE: 20170207
